FAERS Safety Report 7829267-4 (Version None)
Quarter: 2011Q4

REPORT INFORMATION
  Report Type: 
  Country: None (occurrence: None)
  Receive Date: 20111020
  Receipt Date: 20111007
  Transmission Date: 20120403
  Serious: Yes (Other)
  Sender: FDA-Public Use
  Company Number: US-ELI_LILLY_AND_COMPANY-US201005003156

PATIENT
  Sex: Female

DRUGS (7)
  1. VITAMIN D [Concomitant]
     Dosage: 50000 IU, WEEKLY (1/W)
  2. CALCIUM CARBONATE [Concomitant]
     Dosage: UNK, WEEKLY (1/W)
  3. VITAMIN D [Concomitant]
     Dosage: UNK, MONTHLY (1/M)
  4. FORTEO [Suspect]
     Indication: OSTEOPOROSIS
     Dosage: 20 UG, DAILY (1/D)
     Dates: start: 20091001
  5. FORTEO [Suspect]
     Dosage: 20 UG, DAILY (1/D)
     Dates: start: 20091001
  6. CALCIUM CARBONATE [Concomitant]
     Dosage: UNK, MONTHLY (1/M)
  7. VITAMIN D [Concomitant]
     Indication: VITAMIN D DEFICIENCY
     Dosage: UNK, WEEKLY (1/W)

REACTIONS (6)
  - HAEMORRHAGE [None]
  - ANAEMIA [None]
  - WEIGHT DECREASED [None]
  - BONE PAIN [None]
  - VITAMIN D DECREASED [None]
  - INJECTION SITE HAEMATOMA [None]
